FAERS Safety Report 4489091-X (Version None)
Quarter: 2004Q4

REPORT INFORMATION
  Report Type: 
  Country: None (occurrence: None)
  Receive Date: 20041029
  Receipt Date: 20041001
  Transmission Date: 20050328
  Serious: Yes (Life-Threatening, Hospitalization, Disabling)
  Sender: FDA-Public Use
  Company Number: US-ROCHE-382177

PATIENT
  Age: 56 Year
  Sex: Female
  Weight: 53.5 kg

DRUGS (5)
  1. PEGASYS [Suspect]
     Route: 058
     Dates: start: 20040816, end: 20040903
  2. COPEGUS [Suspect]
     Dosage: TAKEN DAILY.
     Route: 048
     Dates: start: 20040816, end: 20040903
  3. OXYCONTIN [Suspect]
     Indication: PAIN
     Route: 048
  4. FORADIL [Concomitant]
  5. COMBIVENT [Concomitant]

REACTIONS (5)
  - CHRONIC OBSTRUCTIVE AIRWAYS DISEASE [None]
  - COMA [None]
  - HEPATIC ENCEPHALOPATHY [None]
  - HEPATIC FAILURE [None]
  - UPPER GASTROINTESTINAL HAEMORRHAGE [None]
